FAERS Safety Report 14317020 (Version 5)
Quarter: 2018Q1

REPORT INFORMATION
  Report Type: Report from Study
  Country: US (occurrence: US)
  Receive Date: 20171222
  Receipt Date: 20180319
  Transmission Date: 20180509
  Serious: Yes (Disabling, Other)
  Sender: FDA-Public Use
  Company Number: PHEH2017US040643

PATIENT
  Age: 46 Year
  Sex: Male

DRUGS (2)
  1. GILENYA [Suspect]
     Active Substance: FINGOLIMOD HYDROCHLORIDE
     Indication: MULTIPLE SCLEROSIS
     Dosage: 0.5 MG, QD
     Route: 048
     Dates: start: 20170615
  2. GILENYA [Suspect]
     Active Substance: FINGOLIMOD HYDROCHLORIDE
     Dosage: UNK
     Route: 048
     Dates: start: 20180119

REACTIONS (11)
  - Vision blurred [Not Recovered/Not Resolved]
  - Fall [Not Recovered/Not Resolved]
  - Eye pain [Recovering/Resolving]
  - Hypoaesthesia [Unknown]
  - Feeling abnormal [Unknown]
  - Photopsia [Unknown]
  - Optic neuritis [Recovering/Resolving]
  - Muscle spasms [Unknown]
  - Dysstasia [Unknown]
  - Visual impairment [Unknown]
  - Tremor [Unknown]

NARRATIVE: CASE EVENT DATE: 20180120
